FAERS Safety Report 24008679 (Version 1)
Quarter: 2024Q2

REPORT INFORMATION
  Report Type: Spontaneous
  Country: US (occurrence: US)
  Receive Date: 20240625
  Receipt Date: 20240625
  Transmission Date: 20240716
  Serious: Yes (Hospitalization)
  Sender: FDA-Public Use
  Company Number: US-TEVA-VS-3209538

PATIENT
  Sex: Female

DRUGS (3)
  1. VENLAFAXINE [Suspect]
     Active Substance: VENLAFAXINE HYDROCHLORIDE
     Indication: Anxiety disorder
     Dosage: VENLAFAXINE HYDROCHLORIDE, EXTENDED RELEASE
     Route: 065
     Dates: start: 2022
  2. MELATONIN [Concomitant]
     Active Substance: MELATONIN
     Indication: Product used for unknown indication
     Dosage: NATURE MADE
     Route: 065
  3. MELATONIN [Concomitant]
     Active Substance: MELATONIN
     Indication: Product used for unknown indication
     Dosage: VITAL FUSION
     Route: 065

REACTIONS (3)
  - Tremor [Unknown]
  - Logorrhoea [Unknown]
  - Agitation [Unknown]

NARRATIVE: CASE EVENT DATE: 20240606
